FAERS Safety Report 6330870-1 (Version None)
Quarter: 2009Q3

REPORT INFORMATION
  Report Type: 
  Country: None (occurrence: None)
  Receive Date: 20090817
  Receipt Date: 20090330
  Transmission Date: 20100115
  Serious: No
  Sender: FDA-Public Use
  Company Number: 20096509

PATIENT
  Age: 67 Year
  Sex: Female

DRUGS (2)
  1. LIORESAL [Suspect]
     Indication: MUSCLE SPASTICITY
     Dosage: MCG/QD, INTRATHECAL - .005 ML : SIMPLE CONTINUOUS
     Route: 037
  2. FENTANYL [Concomitant]

REACTIONS (1)
  - PAIN [None]
